FAERS Safety Report 26211164 (Version 1)
Quarter: 2025Q4

REPORT INFORMATION
  Report Type: Spontaneous
  Country: CN (occurrence: CN)
  Receive Date: 20251230
  Receipt Date: 20251230
  Transmission Date: 20260118
  Serious: Yes (Death, Hospitalization, Other)
  Sender: AMGEN
  Company Number: CN-AMGEN-CHNSP2025254163

PATIENT

DRUGS (4)
  1. REPATHA [Suspect]
     Active Substance: EVOLOCUMAB
     Indication: Angina pectoris
     Dosage: 140 MILLIGRAM, Q2WK
     Route: 058
  2. REPATHA [Suspect]
     Active Substance: EVOLOCUMAB
     Indication: Chronic coronary syndrome
  3. FELODIPINE [Concomitant]
     Active Substance: FELODIPINE
     Indication: Angina pectoris
     Dosage: 5 MILLIGRAM, QD
     Route: 065
  4. FELODIPINE [Concomitant]
     Active Substance: FELODIPINE
     Indication: Chronic coronary syndrome

REACTIONS (9)
  - Cardiac death [Fatal]
  - Angina pectoris [Unknown]
  - Myocardial infarction [Unknown]
  - Drug ineffective [Unknown]
  - Vomiting [Unknown]
  - Abdominal distension [Unknown]
  - Dizziness [Unknown]
  - Headache [Unknown]
  - Nausea [Unknown]
